FAERS Safety Report 15566344 (Version 2)
Quarter: 2018Q4

REPORT INFORMATION
  Report Type: Spontaneous
  Country: ZA (occurrence: ZA)
  Receive Date: 20181030
  Receipt Date: 20181105
  Transmission Date: 20190205
  Serious: Yes (Death)
  Sender: FDA-Public Use
  Company Number: ZA-PFIZER INC-2018442317

PATIENT
  Sex: Female

DRUGS (4)
  1. LANCAP [Suspect]
     Active Substance: LANSOPRAZOLE
     Dosage: 15 MG, UNK
  2. DYNA INDAPAMIDE SR [Suspect]
     Active Substance: INDAPAMIDE
     Dosage: 1.5 MG, UNK
  3. LOMANOR [Suspect]
     Active Substance: AMLODIPINE BESYLATE
     Dosage: 5 MG, UNK
  4. SPIRACTIN (SPIRONOLACTONE) [Suspect]
     Active Substance: SPIRONOLACTONE
     Dosage: 25 MG, UNK

REACTIONS (1)
  - Death [Fatal]
